FAERS Safety Report 6746033-1 (Version None)
Quarter: 2010Q2

REPORT INFORMATION
  Report Type: 
  Country: None (occurrence: None)
  Receive Date: 20100528
  Receipt Date: 20100514
  Transmission Date: 20101027
  Serious: Yes (Hospitalization)
  Sender: FDA-Public Use
  Company Number: US-ELI_LILLY_AND_COMPANY-US201004007236

PATIENT
  Age: 49 Year
  Sex: Female

DRUGS (3)
  1. FORTEO [Suspect]
     Dosage: UNK, UNKNOWN
     Dates: start: 20080201
  2. CALCIUM CARBONATE [Concomitant]
  3. VITAMIN D [Concomitant]

REACTIONS (2)
  - BONE DENSITY DECREASED [None]
  - HOSPITALISATION [None]
